FAERS Safety Report 8162251-2 (Version None)
Quarter: 2012Q1

REPORT INFORMATION
  Report Type: 
  Country: None (occurrence: None)
  Receive Date: 20120224
  Receipt Date: 20120216
  Transmission Date: 20120608
  Serious: Yes (Other)
  Sender: FDA-Public Use
  Company Number: JP-ASTELLAS-2012JP001438

PATIENT
  Age: 27 Year
  Sex: Male

DRUGS (10)
  1. DOXORUBICIN HCL [Concomitant]
     Route: 065
  2. SOLUBLE THROMBOMODULIN [Concomitant]
     Indication: VENOOCCLUSIVE LIVER DISEASE
     Dosage: UNK
     Route: 065
  3. CYTARABINE [Concomitant]
     Route: 065
  4. METHOTREXATE [Concomitant]
     Indication: PROPHYLAXIS AGAINST GRAFT VERSUS HOST DISEASE
     Dosage: UNK
     Route: 065
  5. VINCRISTINE [Concomitant]
     Route: 065
  6. PROGRAF [Suspect]
     Indication: PROPHYLAXIS AGAINST GRAFT VERSUS HOST DISEASE
     Route: 065
  7. DEXAMETHASONE [Concomitant]
     Route: 065
  8. URSODIOL [Concomitant]
     Dosage: UNK
     Route: 065
  9. CYCLOPHOSPHAMIDE [Concomitant]
     Indication: BONE MARROW CONDITIONING REGIMEN
     Route: 065
  10. CYCLOPHOSPHAMIDE [Concomitant]
     Dosage: 60 MG/KG, UNKNOWN/D
     Route: 065

REACTIONS (2)
  - DRUG INEFFECTIVE [None]
  - ACUTE GRAFT VERSUS HOST DISEASE [None]
